FAERS Safety Report 15038067 (Version 1)
Quarter: 2018Q2

REPORT INFORMATION
  Report Type: Spontaneous
  Country: NL (occurrence: NL)
  Receive Date: 20180620
  Receipt Date: 20180620
  Transmission Date: 20180711
  Serious: Yes (Other)
  Sender: FDA-Public Use
  Company Number: NL-TEVA-2018-NL-910215

PATIENT
  Age: 72 Year
  Sex: Male

DRUGS (9)
  1. TAMSULOSINE RET 0,4MG [Concomitant]
     Route: 065
  2. VENLAFAXINE MVA 75MG [Concomitant]
     Route: 065
  3. INEPRAZOL 40MG [Concomitant]
     Route: 065
  4. SPIRIVA RESPIMAT2,5MG [Concomitant]
     Route: 065
  5. ATORVASTATINE TABLET 20MG (ALS CA-ZOUT-3-WATER) TABLET, 20 MG (MILLIG [Suspect]
     Active Substance: ATORVASTATIN
     Indication: BLOOD CHOLESTEROL
     Dosage: ^S AVONDS 1 TABLET
     Dates: start: 2011
  6. D-CURA DRANK 25000 IE [Concomitant]
     Route: 065
  7. VENLAFAXINE MVA 150MG [Concomitant]
     Route: 065
  8. DICLOFENAC RETARD 100MG [Concomitant]
     Route: 065
  9. ACETYLSALICYLZUUR 80MG [Concomitant]

REACTIONS (1)
  - Muscle haemorrhage [Not Recovered/Not Resolved]

NARRATIVE: CASE EVENT DATE: 20180412
